FAERS Safety Report 9421715 (Version 1)
Quarter: 2013Q3

REPORT INFORMATION
  Report Type: Spontaneous
  Country: FR (occurrence: FR)
  Receive Date: 20130726
  Receipt Date: 20130726
  Transmission Date: 20140515
  Serious: Yes (Other)
  Sender: FDA-Public Use
  Company Number: FR-MERCK-1307FRA010227

PATIENT
  Age: 76 Year
  Sex: Male

DRUGS (2)
  1. JANUMET [Suspect]
     Dosage: 2 DF, QD
     Route: 048
     Dates: start: 201103, end: 20130524
  2. AMAREL [Suspect]
     Dosage: 2 MG, QD
     Route: 048
     Dates: end: 20130524

REACTIONS (2)
  - Cervix oedema [Unknown]
  - Hypoglycaemia [Recovered/Resolved]
